FAERS Safety Report 7419773-9 (Version None)
Quarter: 2011Q2

REPORT INFORMATION
  Report Type: 
  Country: None (occurrence: None)
  Receive Date: 20110418
  Receipt Date: 20110405
  Transmission Date: 20111010
  Serious: Yes (Hospitalization)
  Sender: FDA-Public Use
  Company Number: US-EISAI INC-E7273-00225-CLI-US

PATIENT
  Age: 66 Year
  Sex: Male
  Weight: 77.7 kg

DRUGS (2)
  1. TARGRETIN [Suspect]
     Route: 048
     Dates: start: 20110208
  2. DECITABINE [Suspect]
     Route: 042

REACTIONS (1)
  - FEBRILE NEUTROPENIA [None]
